FAERS Safety Report 20024325 (Version 5)
Quarter: 2022Q2

REPORT INFORMATION
  Report Type: Spontaneous
  Country: JP (occurrence: JP)
  Receive Date: 20211102
  Receipt Date: 20220609
  Transmission Date: 20220721
  Serious: Yes (Life-Threatening, Disabling, Other)
  Sender: FDA-Public Use
  Company Number: JP-ONO-2021JP027153

PATIENT
  Age: 63 Year
  Sex: Male
  Weight: 41.30 kg

DRUGS (6)
  1. YERVOY [Suspect]
     Active Substance: IPILIMUMAB
     Indication: Non-small cell lung cancer recurrent
     Dosage: 45.1 MG
     Route: 041
     Dates: start: 20210512, end: 20210512
  2. OPDIVO [Suspect]
     Active Substance: NIVOLUMAB
     Indication: Non-small cell lung cancer recurrent
     Dosage: 360 MG
     Route: 041
     Dates: start: 20210512, end: 20210604
  3. PACLITAXEL [Suspect]
     Active Substance: PACLITAXEL
     Indication: Non-small cell lung cancer recurrent
     Dosage: 290.4 MG
     Route: 041
     Dates: start: 20210512, end: 20210512
  4. PACLITAXEL [Suspect]
     Active Substance: PACLITAXEL
     Dosage: 200 MG
     Route: 041
     Dates: start: 20210604, end: 20210604
  5. CARBOPLATIN [Suspect]
     Active Substance: CARBOPLATIN
     Indication: Non-small cell lung cancer recurrent
     Dosage: 696 MG
     Route: 041
     Dates: start: 20210512, end: 20210512
  6. CARBOPLATIN [Suspect]
     Active Substance: CARBOPLATIN
     Dosage: 445.5 MG
     Route: 041
     Dates: start: 20210604, end: 20210604

REACTIONS (12)
  - Pneumonia bacterial [Recovered/Resolved]
  - Liver disorder [Recovered/Resolved]
  - Renal disorder [Recovering/Resolving]
  - Blood creatinine increased [Recovering/Resolving]
  - Febrile neutropenia [Unknown]
  - Interstitial lung disease [Recovering/Resolving]
  - Malignant neoplasm progression [Unknown]
  - Aspartate aminotransferase increased [Recovered/Resolved]
  - Alanine aminotransferase increased [Recovered/Resolved]
  - Rash [Unknown]
  - Sepsis [Recovered/Resolved]
  - Acute kidney injury [Recovering/Resolving]

NARRATIVE: CASE EVENT DATE: 20210616
